FAERS Safety Report 7457527-8 (Version None)
Quarter: 2011Q2

REPORT INFORMATION
  Report Type: 
  Country: None (occurrence: None)
  Receive Date: 20110504
  Receipt Date: 20110427
  Transmission Date: 20111010
  Serious: Yes (Other)
  Sender: FDA-Public Use
  Company Number: JP-BRISTOL-MYERS SQUIBB COMPANY-15709470

PATIENT
  Age: 4 Year
  Sex: Male

DRUGS (6)
  1. CARBOPLATIN [Suspect]
  2. IFOSFAMIDE [Suspect]
  3. THP-ADRIAMYCIN [Suspect]
  4. CISPLATIN [Suspect]
  5. PIRARUBICIN [Suspect]
  6. VEPESID [Suspect]
     Indication: HEPATOBLASTOMA
     Route: 041

REACTIONS (1)
  - ACUTE MYELOMONOCYTIC LEUKAEMIA [None]
